FAERS Safety Report 9034019 (Version 1)
Quarter: 2013Q1

REPORT INFORMATION
  Report Type: Spontaneous
  Country: US (occurrence: US)
  Receive Date: 20130128
  Receipt Date: 20130128
  Transmission Date: 20140127
  Serious: Yes (Hospitalization)
  Sender: FDA-Public Use
  Company Number: US-AMGEN-USASP2012064046

PATIENT
  Age: 74 Year
  Sex: Female
  Weight: 23.58 kg

DRUGS (10)
  1. ENBREL [Suspect]
     Indication: RHEUMATOID ARTHRITIS
     Dosage: 50 MG, QWK
     Route: 058
  2. SYNTHROID [Concomitant]
     Dosage: 50 MUG, UNK
  3. METHOTREXAT                        /00113801/ [Concomitant]
     Dosage: 2.5 MG, UNK
  4. NAMENDA [Concomitant]
     Dosage: 5 MG, UNK
  5. VITAMIN D /00107901/ [Concomitant]
     Dosage: 2000 UNIT, UNK
  6. ALEVE [Concomitant]
     Dosage: 220 MG, UNK
  7. VITAMIN C                          /00008001/ [Concomitant]
     Dosage: 500 MG, UNK
  8. FOLIC ACID [Concomitant]
     Dosage: UNK
  9. DONEPEZIL [Concomitant]
     Dosage: 5 MG, UNK
  10. VITAMIN D2 [Concomitant]
     Dosage: 2000 UNIT, UNK

REACTIONS (1)
  - Fall [Unknown]
